FAERS Safety Report 20332149 (Version 1)
Quarter: 2022Q1

REPORT INFORMATION
  Report Type: Spontaneous
  Country: US (occurrence: None)
  Receive Date: 20220113
  Receipt Date: 20220113
  Transmission Date: 20220423
  Serious: No
  Sender: FDA-Public Use
  Company Number: None

PATIENT
  Age: 15 Year
  Sex: Female

DRUGS (1)
  1. NUCALA [Suspect]
     Active Substance: MEPOLIZUMAB
     Indication: Asthma
     Dosage: OTHER FREQUENCY : EVRY 28 DAYS;?
     Route: 058
     Dates: start: 202010

REACTIONS (2)
  - Injection site extravasation [None]
  - Injection site haemorrhage [None]

NARRATIVE: CASE EVENT DATE: 20220104
